FAERS Safety Report 12636669 (Version 1)
Quarter: 2016Q3

REPORT INFORMATION
  Report Type: Spontaneous
  Country: IT (occurrence: IT)
  Receive Date: 20160809
  Receipt Date: 20160809
  Transmission Date: 20161109
  Serious: Yes (Hospitalization)
  Sender: FDA-Public Use
  Company Number: IT-SUN PHARMACEUTICAL INDUSTRIES LTD-2016RR-121572

PATIENT
  Age: 50 Year
  Sex: Male

DRUGS (3)
  1. ELETRIPTAN [Suspect]
     Active Substance: ELETRIPTAN
     Indication: HEADACHE
     Dosage: 400 MG MONTHLY
     Route: 048
     Dates: start: 20151201, end: 20160704
  2. RIVOTRIL [Suspect]
     Active Substance: CLONAZEPAM
     Indication: PRODUCT USED FOR UNKNOWN INDICATION
     Dosage: 60 GTT DAILY
     Route: 048
     Dates: start: 20151201, end: 20160704
  3. PARACETAMOL [Suspect]
     Active Substance: ACETAMINOPHEN
     Indication: HEADACHE
     Dosage: 20 G MONTHLY
     Route: 048
     Dates: start: 20151201, end: 20160704

REACTIONS (2)
  - Blood creatine phosphokinase increased [Recovered/Resolved]
  - Drug abuse [Recovered/Resolved]

NARRATIVE: CASE EVENT DATE: 20160704
